FAERS Safety Report 8106198-6 (Version None)
Quarter: 2012Q1

REPORT INFORMATION
  Report Type: 
  Country: None (occurrence: None)
  Receive Date: 20120202
  Receipt Date: 20120127
  Transmission Date: 20120608
  Serious: Yes (Other)
  Sender: FDA-Public Use
  Company Number: ES-BAYER-2012-009614

PATIENT
  Age: 54 Year
  Sex: Female

DRUGS (2)
  1. VALSARTAN [Concomitant]
     Dosage: 80 MG, QD
  2. MIRENA [Suspect]
     Indication: ENDOMETRIAL HYPERPLASIA
     Dosage: 20 ?G, CONT
     Route: 015
     Dates: start: 20110117, end: 20111219

REACTIONS (6)
  - PRURITUS [None]
  - NERVOUSNESS [None]
  - BREAST CANCER [None]
  - HIRSUTISM [None]
  - SWELLING [None]
  - ACNE [None]
